FAERS Safety Report 8051808-5 (Version None)
Quarter: 2012Q1

REPORT INFORMATION
  Report Type: 
  Country: None (occurrence: None)
  Receive Date: 20120118
  Receipt Date: 20120109
  Transmission Date: 20120608
  Serious: Yes (Other)
  Sender: FDA-Public Use
  Company Number: US-BRISTOL-MYERS SQUIBB COMPANY-16336547

PATIENT
  Age: 39 Year
  Sex: Female

DRUGS (3)
  1. PREDNISONE [Suspect]
     Dates: start: 20070101
  2. HYDROXYCHLOROQUINE SULFATE [Suspect]
     Dates: start: 20070101
  3. CYCLOPHOSPHAMIDE [Suspect]
     Indication: LUPUS NEPHRITIS
     Dosage: NO OF DOSE:6
     Dates: start: 20100101

REACTIONS (2)
  - LEUKOPENIA [None]
  - EOSINOPHILIA [None]
